FAERS Safety Report 23078426 (Version 1)
Quarter: 2023Q4

REPORT INFORMATION
  Report Type: Spontaneous
  Country: US (occurrence: None)
  Receive Date: 20231018
  Receipt Date: 20231018
  Transmission Date: 20240109
  Serious: No
  Sender: FDA-Public Use
  Company Number: 2023A235259

PATIENT
  Sex: Female

DRUGS (1)
  1. BRILINTA [Suspect]
     Active Substance: TICAGRELOR
     Route: 048
     Dates: start: 20230910

REACTIONS (7)
  - Dry mouth [Unknown]
  - Pain in extremity [Unknown]
  - Haemoptysis [Unknown]
  - Cough [Unknown]
  - Gait disturbance [Unknown]
  - Epistaxis [Unknown]
  - Bone pain [Unknown]
